FAERS Safety Report 9360945 (Version 1)
Quarter: 2013Q2

REPORT INFORMATION
  Report Type: Report from Study
  Country: CZ (occurrence: CZ)
  Receive Date: 20130621
  Receipt Date: 20130621
  Transmission Date: 20140414
  Serious: Yes (Hospitalization, Disabling, Other)
  Sender: FDA-Public Use
  Company Number: CZ-ABBOTT-13P-217-1103943-00

PATIENT
  Age: 40 Year
  Sex: Male

DRUGS (1)
  1. HUMIRA [Suspect]
     Indication: ANKYLOSING SPONDYLITIS
     Route: 058
     Dates: start: 201006, end: 20130510

REACTIONS (5)
  - Liver disorder [Recovering/Resolving]
  - Jaundice [Recovering/Resolving]
  - Splenomegaly [Recovering/Resolving]
  - Renal failure chronic [Recovering/Resolving]
  - Leptospirosis [Recovering/Resolving]
